FAERS Safety Report 21476468 (Version 2)
Quarter: 2022Q4

REPORT INFORMATION
  Report Type: Other
  Country: EC (occurrence: None)
  Receive Date: 20221019
  Receipt Date: 20221106
  Transmission Date: 20230113
  Serious: Yes (Hospitalization, Other)
  Sender: FDA-Public Use
  Company Number: EC-ROCHE-3202804

PATIENT
  Sex: Female

DRUGS (1)
  1. ACTEMRA [Suspect]
     Active Substance: TOCILIZUMAB
     Indication: Rheumatoid arthritis
     Route: 065
     Dates: start: 20220923

REACTIONS (3)
  - Septic shock [Unknown]
  - Necrotising fasciitis [Not Recovered/Not Resolved]
  - Impaired healing [Not Recovered/Not Resolved]
